FAERS Safety Report 5294572-5 (Version None)
Quarter: 2007Q2

REPORT INFORMATION
  Report Type: 
  Country: None (occurrence: None)
  Receive Date: 20070412
  Receipt Date: 20070329
  Transmission Date: 20071010
  Serious: Yes (Death, Hospitalization)
  Sender: FDA-Public Use
  Company Number: ES-JNJFOC-20070304140

PATIENT
  Age: 44 Year
  Sex: Male

DRUGS (5)
  1. REMICADE [Suspect]
     Indication: CROHN'S DISEASE
     Dosage: 15 DOSES
     Route: 042
  2. AZATHIOPRINE SODIUM [Concomitant]
     Indication: INFLAMMATORY BOWEL DISEASE
  3. LIXACOL [Concomitant]
     Indication: INFLAMMATORY BOWEL DISEASE
  4. CORTICOSTEROIDS [Concomitant]
  5. OPTOVITE B12 [Concomitant]
     Indication: INFLAMMATORY BOWEL DISEASE

REACTIONS (5)
  - ACUTE MYOCARDIAL INFARCTION [None]
  - ANGINA PECTORIS [None]
  - CARDIOGENIC SHOCK [None]
  - PERIANAL ABSCESS [None]
  - SUDDEN DEATH [None]
